FAERS Safety Report 6878658-7 (Version None)
Quarter: 2010Q3

REPORT INFORMATION
  Report Type: 
  Country: None (occurrence: None)
  Receive Date: 20100728
  Receipt Date: 20100726
  Transmission Date: 20110219
  Serious: Yes (Congenital Anomaly)
  Sender: FDA-Public Use
  Company Number: A0872413A

PATIENT
  Sex: Female

DRUGS (3)
  1. COMBIVIR [Suspect]
     Indication: HIV INFECTION
     Dates: start: 20030902, end: 20040110
  2. VIRAMUNE [Suspect]
     Indication: HIV INFECTION
     Dates: start: 20030902, end: 20040110
  3. TOBACCO [Concomitant]

REACTIONS (2)
  - ARRHYTHMIA NEONATAL [None]
  - DRUG EXPOSURE DURING PREGNANCY [None]
